FAERS Safety Report 19645151 (Version 1)
Quarter: 2021Q3

REPORT INFORMATION
  Report Type: Spontaneous
  Country: NL (occurrence: NL)
  Receive Date: 20210802
  Receipt Date: 20210802
  Transmission Date: 20211014
  Serious: Yes (Other)
  Sender: FDA-Public Use
  Company Number: NL-TEVA-2021-NL-1937876

PATIENT
  Age: 63 Year
  Sex: Male
  Weight: 73 kg

DRUGS (5)
  1. METOPROLOL TABLET MGA 100MG (SUCCINAAT) / SELOKEEN ZOC 100 TABLET MGA [Concomitant]
     Active Substance: METOPROLOL SUCCINATE
     Dosage: 100 MG, THERAPY START AND END DATE: ASKU
  2. ACENOCOUMAROL TABLET 1MG / BRAND NAME NOT SPECIFIED [Concomitant]
     Active Substance: ACENOCOUMAROL
     Dosage: 1 MG, THERAPY START AND END DATE: ASKU
  3. SACUBITRIL/VALSARTAN TABLET 24/26MG / ENTRESTO TABLET FILMOMHULD 24/ 2 [Concomitant]
     Dosage: 24/26 MG, THERAPY START AND END DATE: ASKU, 1 DF
  4. TRAMADOL CAPSULE MGA 100MG / BRAND NAME NOT SPECIFIED [Concomitant]
     Dosage: MODIFIED?RELEASE CAPSULE, 100 MG, THERAPY START AND END DATE: ASKU
  5. CLOPIDOGREL TABLET   75MG / BRAND NAME NOT SPECIFIED [Suspect]
     Active Substance: CLOPIDOGREL BISULFATE
     Indication: ANTICOAGULANT THERAPY
     Dosage: 75 MILLIGRAM DAILY;
     Route: 065
     Dates: start: 20210624, end: 20210708

REACTIONS (4)
  - Restlessness [Recovered/Resolved]
  - Anxiety [Recovered/Resolved]
  - Suicidal ideation [Recovered/Resolved]
  - Poor quality sleep [Recovered/Resolved]

NARRATIVE: CASE EVENT DATE: 20210629
